FAERS Safety Report 6302740-6 (Version None)
Quarter: 2009Q3

REPORT INFORMATION
  Report Type: 
  Country: None (occurrence: None)
  Receive Date: 20090810
  Receipt Date: 20090721
  Transmission Date: 20100115
  Serious: Yes (Death, Hospitalization)
  Sender: FDA-Public Use
  Company Number: PHHY2009JP31810

PATIENT
  Age: 65 Year
  Sex: Male

DRUGS (12)
  1. NEORAL [Suspect]
  2. PIRESPA (PIRFENIDONE) [Suspect]
     Indication: IDIOPATHIC PULMONARY FIBROSIS
     Dosage: 600 MG DAILY
     Route: 048
     Dates: start: 20090408
  3. PIRESPA (PIRFENIDONE) [Suspect]
     Dosage: 1200 MG, UNK
     Route: 048
     Dates: start: 20090422
  4. PIRESPA (PIRFENIDONE) [Suspect]
     Dosage: 600 MG DAILY
     Dates: start: 20090511, end: 20090515
  5. PIRESPA (PIRFENIDONE) [Suspect]
     Dosage: UNK
     Dates: start: 20090518, end: 20090520
  6. CIPROXAN [Suspect]
  7. TIENAM [Suspect]
  8. PRECEDEX [Suspect]
  9. ELASPOL [Suspect]
  10. FRAGMIN [Suspect]
  11. BACTRAMIN [Suspect]
  12. OMEPRAL [Suspect]

REACTIONS (5)
  - CONDITION AGGRAVATED [None]
  - IDIOPATHIC PULMONARY FIBROSIS [None]
  - PLATELET COUNT DECREASED [None]
  - VOMITING [None]
  - WHITE BLOOD CELL COUNT DECREASED [None]
